FAERS Safety Report 11600093 (Version 1)
Quarter: 2015Q4

REPORT INFORMATION
  Report Type: Spontaneous
  Country: US (occurrence: US)
  Receive Date: 20151006
  Receipt Date: 20151006
  Transmission Date: 20160304
  Serious: No
  Sender: FDA-Public Use
  Company Number: US-AMGEN-USASP2015033372

PATIENT
  Age: 78 Year
  Sex: Female

DRUGS (1)
  1. PROLIA [Suspect]
     Active Substance: DENOSUMAB
     Indication: OSTEOPOROSIS
     Dosage: UNK
     Route: 065
     Dates: start: 201312

REACTIONS (10)
  - Eczema [Unknown]
  - Rash [Unknown]
  - Skin disorder [Unknown]
  - Pruritus [Unknown]
  - Erythema [Unknown]
  - Limb discomfort [Not Recovered/Not Resolved]
  - Hypersensitivity [Unknown]
  - Skin irritation [Unknown]
  - Musculoskeletal discomfort [Unknown]
  - Fungal infection [Unknown]
